FAERS Safety Report 23379264 (Version 2)
Quarter: 2025Q1

REPORT INFORMATION
  Report Type: Spontaneous
  Country: IT (occurrence: IT)
  Receive Date: 20240108
  Receipt Date: 20250321
  Transmission Date: 20250408
  Serious: Yes (Death)
  Sender: TEVA
  Company Number: IT-TEVA-VS-3140140

PATIENT
  Age: 56 Year
  Sex: Male

DRUGS (3)
  1. DOXAZOSIN [Suspect]
     Active Substance: DOXAZOSIN MESYLATE
     Indication: Completed suicide
     Route: 065
  2. AMLODIPINE [Suspect]
     Active Substance: AMLODIPINE BESYLATE
     Indication: Completed suicide
     Route: 065
  3. CARVEDILOL [Suspect]
     Active Substance: CARVEDILOL
     Indication: Completed suicide
     Route: 065

REACTIONS (8)
  - Brain oedema [Fatal]
  - Myocardial fibrosis [Fatal]
  - Loss of consciousness [Fatal]
  - Intentional overdose [Fatal]
  - Pulmonary oedema [Fatal]
  - Toxicity to various agents [Fatal]
  - Arteriosclerosis coronary artery [Fatal]
  - Completed suicide [Fatal]
